FAERS Safety Report 9124921 (Version 1)
Quarter: 2013Q1

REPORT INFORMATION
  Report Type: Report from Study
  Country: DE (occurrence: DE)
  Receive Date: 20130121
  Receipt Date: 20130121
  Transmission Date: 20140127
  Serious: Yes (Hospitalization)
  Sender: FDA-Public Use
  Company Number: DE-ABBOTT-13P-062-1035367-00

PATIENT
  Age: 31 Year
  Sex: Male
  Weight: 60 kg

DRUGS (9)
  1. HUMIRA [Suspect]
     Indication: CROHN^S DISEASE
     Route: 058
     Dates: start: 20120914, end: 201211
  2. SULFASALAZINE [Concomitant]
     Indication: CROHN^S DISEASE
  3. BUDESONIDE [Concomitant]
     Indication: CROHN^S DISEASE
  4. MAGNESIUM [Concomitant]
     Indication: CROHN^S DISEASE
  5. ZINC [Concomitant]
     Indication: CROHN^S DISEASE
  6. CALCIUM [Concomitant]
     Indication: CROHN^S DISEASE
  7. INFLANEFRAN [Concomitant]
     Indication: PRODUCT USED FOR UNKNOWN INDICATION
  8. BORO-SCOPOL [Concomitant]
     Indication: PRODUCT USED FOR UNKNOWN INDICATION
  9. COLIFOAM [Concomitant]
     Indication: CROHN^S DISEASE
     Route: 054

REACTIONS (1)
  - Unevaluable event [Unknown]
